FAERS Safety Report 13362885 (Version 3)
Quarter: 2017Q3

REPORT INFORMATION
  Report Type: Spontaneous
  Country: US (occurrence: US)
  Receive Date: 20170323
  Receipt Date: 20170804
  Transmission Date: 20171127
  Serious: Yes (Other)
  Sender: FDA-Public Use
  Company Number: US-VERTEX PHARMACEUTICALS-2017-001500

PATIENT
  Age: 45 Year
  Sex: Female

DRUGS (26)
  1. NORVASC [Concomitant]
     Active Substance: AMLODIPINE BESYLATE
     Dosage: 2 DF, QD
     Route: 048
     Dates: start: 20170117
  2. PULMOZYME [Concomitant]
     Active Substance: DORNASE ALFA
     Dosage: NEBULIZE ONE VIAL DAILY
     Route: 055
     Dates: start: 20160506
  3. LASIX [Concomitant]
     Active Substance: FUROSEMIDE
     Dosage: 1 DF, QD
     Route: 048
     Dates: start: 20141013
  4. ZOFRAN [Concomitant]
     Active Substance: ONDANSETRON HYDROCHLORIDE
     Dosage: TAKE, 1 TABLET BY MOUTH EVERY 8, HOURS
     Route: 048
     Dates: start: 20170316
  5. GLYCOLAX [Concomitant]
     Active Substance: POLYETHYLENE GLYCOL 3350
     Dosage: UNK
     Dates: start: 20161102
  6. NOVOLOG [Concomitant]
     Active Substance: INSULIN ASPART
     Dosage: UNK
     Route: 058
     Dates: start: 20161207
  7. LOPRESSOR [Concomitant]
     Active Substance: METOPROLOL TARTRATE
     Dosage: 2 DF, BID
     Dates: start: 20170306
  8. PANCREAZE [Concomitant]
     Active Substance: PANCRELIPASE AMYLASE\PANCRELIPASE LIPASE\PANCRELIPASE PROTEASE
     Dosage: TAKE 5.6 CAPSULES WITH, MEALS AND 2-4 WITH SNACKS
     Dates: start: 20151215
  9. COUMADIN [Concomitant]
     Active Substance: WARFARIN SODIUM
     Dosage: UNK
     Route: 048
     Dates: start: 20161118
  10. ULTRAM [Concomitant]
     Active Substance: TRAMADOL HYDROCHLORIDE
     Dosage: TAKE ONE EVERY 12 HOURS AS NEEDED FOR PAIN
     Dates: start: 20170308
  11. XANAX [Concomitant]
     Active Substance: ALPRAZOLAM
     Dosage: 1 DF, BID
     Route: 048
     Dates: start: 20150930
  12. ADVIL [Concomitant]
     Active Substance: IBUPROFEN
     Indication: PAIN
     Dosage: 1 TABLET BY MOUTH EVERY 6 HOURS
     Route: 048
     Dates: start: 20161118
  13. CHRONULAC [Concomitant]
     Active Substance: LACTULOSE
     Dosage: UNK
     Dates: start: 20160729
  14. ZOVIRAX [Concomitant]
     Active Substance: ACYCLOVIR
     Indication: ORAL HERPES
     Dosage: UNK
     Dates: start: 20151228
  15. MICRO-K [Concomitant]
     Active Substance: POTASSIUM CHLORIDE
     Dosage: TAKE 4 CAPSULES BY MOUTH 2 TIMES A DAY WITH MEALS
     Route: 048
     Dates: start: 20170217
  16. XOPENEX [Concomitant]
     Active Substance: LEVALBUTEROL HYDROCHLORIDE
     Dosage: NEBULIZE UP TO 4-6 TIMES DAILY
     Route: 055
     Dates: start: 20160705
  17. ACTIGALL [Concomitant]
     Active Substance: URSODIOL
     Dosage: 1 DF, TID
     Route: 048
     Dates: start: 20170217
  18. SINGULAIR [Concomitant]
     Active Substance: MONTELUKAST SODIUM
     Dosage: UNK
     Route: 048
     Dates: start: 20150102
  19. ASCORBIC ACID. [Concomitant]
     Active Substance: ASCORBIC ACID
     Dosage: 1 DF, QD
     Route: 048
     Dates: start: 20080412
  20. APRESOLINE HYDROCHLORIDE [Concomitant]
     Active Substance: HYDRALAZINE HYDROCHLORIDE
     Dosage: 2 DF, BID
     Route: 048
     Dates: start: 20161205
  21. NASONEX [Concomitant]
     Active Substance: MOMETASONE FUROATE
     Dosage: USE 2 SPRAYS IN EACH NOSTRIL DAILY
     Route: 045
     Dates: start: 20151102
  22. SENNA [Concomitant]
     Active Substance: SENNA LEAF\SENNOSIDES\SENNOSIDES A AND B
     Dosage: TAKE 21 CAPSULES BY MOUTH 2 TIMES A DAY
     Route: 048
     Dates: start: 20161114
  23. HYPERSAL [Concomitant]
     Dosage: 4 ML, BID
     Route: 055
     Dates: start: 20160505
  24. ORKAMBI [Suspect]
     Active Substance: IVACAFTOR\LUMACAFTOR
     Indication: CYSTIC FIBROSIS
     Dosage: 2 DF (200/125MG EACH), BID
     Route: 048
     Dates: start: 20150814, end: 2017
  25. OYSTER SHELL CACIUM WITH VITAMIN D [Concomitant]
     Dosage: 1 DF, BID
     Route: 048
     Dates: start: 20161024
  26. NEXIUM [Concomitant]
     Active Substance: ESOMEPRAZOLE MAGNESIUM
     Dosage: 1 DF, BID
     Route: 048
     Dates: start: 20151012

REACTIONS (1)
  - Cataract [Recovered/Resolved]

NARRATIVE: CASE EVENT DATE: 20161101
